FAERS Safety Report 7600961-3 (Version None)
Quarter: 2011Q3

REPORT INFORMATION
  Report Type: 
  Country: None (occurrence: None)
  Receive Date: 20110711
  Receipt Date: 20110701
  Transmission Date: 20111222
  Serious: Yes (Hospitalization)
  Sender: FDA-Public Use
  Company Number: US-ALEXION-A201100995

PATIENT
  Sex: Female

DRUGS (6)
  1. AMBIEN [Concomitant]
     Dosage: UNK
  2. COMPAZINE [Concomitant]
     Dosage: UNK
  3. DILAUDID [Concomitant]
     Dosage: UNK
  4. IBUPROFEN [Concomitant]
     Dosage: UNK
  5. SOLIRIS [Suspect]
     Indication: PAROXYSMAL NOCTURNAL HAEMOGLOBINURIA
     Dosage: 900 MG, UNK
     Route: 042
  6. ATIVAN [Concomitant]
     Dosage: UNK

REACTIONS (1)
  - SUBCUTANEOUS ABSCESS [None]
